FAERS Safety Report 7915872-3 (Version None)
Quarter: 2011Q4

REPORT INFORMATION
  Report Type: 
  Country: None (occurrence: None)
  Receive Date: 20111115
  Receipt Date: 20111109
  Transmission Date: 20120403
  Serious: Yes (Other)
  Sender: FDA-Public Use
  Company Number: US-GILEAD-2011-0046554

PATIENT
  Age: 32 Year
  Sex: Female

DRUGS (2)
  1. TENOFOVIR DISOPROXIL FUMARATE [Suspect]
     Indication: PROPHYLAXIS AGAINST HIV INFECTION
     Dosage: UNK
     Dates: start: 20090929, end: 20110510
  2. CETIRIZINE HCL [Concomitant]
     Dosage: UNK
     Dates: start: 20110412, end: 20110421

REACTIONS (1)
  - ABORTION SPONTANEOUS [None]
